FAERS Safety Report 23635744 (Version 2)
Quarter: 2024Q2

REPORT INFORMATION
  Report Type: Spontaneous
  Country: US (occurrence: US)
  Receive Date: 20240315
  Receipt Date: 20240614
  Transmission Date: 20240716
  Serious: No
  Sender: FDA-Public Use
  Company Number: US-BRISTOL-MYERS SQUIBB COMPANY-2024-041455

PATIENT
  Age: 39 Year

DRUGS (4)
  1. OPDIVO [Suspect]
     Active Substance: NIVOLUMAB
     Indication: Malignant connective tissue neoplasm
     Dosage: DOSE : YERVOY 50MG / OPDIVO 480MG;     FREQ : YERVOY EVERY 3 WEEKS NOW DISCONTINUED OPDIVO EVERY 4 W
  2. OPDIVO [Suspect]
     Active Substance: NIVOLUMAB
     Indication: Soft tissue sarcoma
  3. YERVOY [Suspect]
     Active Substance: IPILIMUMAB
     Indication: Malignant connective tissue neoplasm
     Dosage: DOSE : YERVOY 50MG / OPDIVO 480MG;     FREQ : YERVOY EVERY 3 WEEKS NOW DISCONTINUED OPDIVO EVERY 4 W
  4. YERVOY [Suspect]
     Active Substance: IPILIMUMAB
     Indication: Soft tissue sarcoma

REACTIONS (1)
  - Off label use [Unknown]
